FAERS Safety Report 6564988-5 (Version None)
Quarter: 2010Q1

REPORT INFORMATION
  Report Type: 
  Country: None (occurrence: None)
  Receive Date: 20100201
  Receipt Date: 20100120
  Transmission Date: 20100710
  Serious: Yes (Hospitalization, Other)
  Sender: FDA-Public Use
  Company Number: TW-PFIZER INC-2010011282

PATIENT
  Age: 77 Year
  Sex: Male

DRUGS (1)
  1. DILANTIN [Suspect]
     Indication: PROPHYLAXIS
     Dosage: 100 MG, 1X/DAY
     Dates: start: 20070101

REACTIONS (5)
  - APNOEA [None]
  - CEREBRAL HAEMORRHAGE [None]
  - CHROMATURIA [None]
  - GINGIVAL BLEEDING [None]
  - SOMNOLENCE [None]
